FAERS Safety Report 19997671 (Version 1)
Quarter: 2021Q4

REPORT INFORMATION
  Report Type: Spontaneous
  Country: US (occurrence: US)
  Receive Date: 20211026
  Receipt Date: 20211026
  Transmission Date: 20220303
  Serious: Yes (Hospitalization, Other)
  Sender: FDA-Public Use
  Company Number: 2021A779642

PATIENT
  Sex: Female

DRUGS (2)
  1. QUETIAPINE FUMARATE [Suspect]
     Active Substance: QUETIAPINE FUMARATE
     Indication: Bipolar I disorder
     Route: 048
     Dates: start: 202103
  2. QUETIAPINE FUMARATE [Suspect]
     Active Substance: QUETIAPINE FUMARATE
     Indication: Bipolar I disorder
     Route: 048
     Dates: end: 202103

REACTIONS (8)
  - Quadriplegia [Unknown]
  - Panic attack [Unknown]
  - Anxiety [Unknown]
  - Depression [Unknown]
  - Sedation [Unknown]
  - Fatigue [Unknown]
  - Drug ineffective [Unknown]
  - Intentional product use issue [Unknown]
